FAERS Safety Report 11058635 (Version 1)
Quarter: 2015Q2

REPORT INFORMATION
  Report Type: Spontaneous
  Country: DE (occurrence: None)
  Receive Date: 20150421
  Receipt Date: 20150421
  Transmission Date: 20150821
  Serious: Yes (Life-Threatening, Hospitalization)
  Sender: FDA-Public Use
  Company Number: DE-DEXPHARM-20150250

PATIENT
  Age: 54 Year
  Sex: Female
  Weight: 53 kg

DRUGS (4)
  1. IBUPROFEN (IBUPROFEN) [Suspect]
     Active Substance: IBUPROFEN
     Indication: MUSCULOSKELETAL DISCOMFORT
  2. DICLOFENAC [Suspect]
     Active Substance: DICLOFENAC
     Indication: MUSCULOSKELETAL DISCOMFORT
     Dates: start: 2002
  3. ENALAPRIL [Concomitant]
     Active Substance: ENALAPRIL
  4. DICLOFENAC (DICLOFENAC) 75 MG [Suspect]
     Active Substance: DICLOFENAC
     Indication: MUSCULOSKELETAL DISCOMFORT
     Dosage: DOSE: 75 MG MILLGRAM(S)  SEP. DOSAGES / INTERVAL:  1 IN 1 DAYS
     Dates: start: 2006, end: 2013

REACTIONS (2)
  - Stress cardiomyopathy [None]
  - Drug administration error [None]

NARRATIVE: CASE EVENT DATE: 20130629
